FAERS Safety Report 24081492 (Version 2)
Quarter: 2024Q3

REPORT INFORMATION
  Report Type: Report from Study
  Country: US (occurrence: US)
  Receive Date: 20240712
  Receipt Date: 20240805
  Transmission Date: 20241017
  Serious: Yes (Hospitalization, Other)
  Sender: JAZZ
  Company Number: US-JAZZ PHARMACEUTICALS-2022-US-038539

PATIENT
  Sex: Male

DRUGS (5)
  1. EPIDIOLEX [Suspect]
     Active Substance: CANNABIDIOL
     Indication: Idiopathic generalised epilepsy
     Dosage: 0.65 MILLIGRAM, QD (MIDDAY)
     Route: 048
     Dates: start: 202208
  2. EPIDIOLEX [Suspect]
     Active Substance: CANNABIDIOL
     Indication: Epilepsy
     Dosage: 0.7 MILLIGRAM, QD (EVENING)
     Route: 048
     Dates: start: 202208
  3. EPIDIOLEX [Suspect]
     Active Substance: CANNABIDIOL
     Indication: Lennox-Gastaut syndrome
     Dosage: 0.65 ML BY MOUTH IN THE MORNING, 0.65 ML AT MIDDAY, AND 0.7 ML IN THE EVENING
     Route: 048
  4. EPIDIOLEX [Suspect]
     Active Substance: CANNABIDIOL
     Dosage: 65 MG IN THE MORNING, 65MG IN THE AFTERNOON, 70MG IN THE EVENING
  5. PENICILLIN [Suspect]
     Active Substance: PENICILLIN
     Indication: Product used for unknown indication

REACTIONS (4)
  - Status epilepticus [Unknown]
  - Drug hypersensitivity [Unknown]
  - Emergency care [Unknown]
  - Off label use [Unknown]
